FAERS Safety Report 25564427 (Version 3)
Quarter: 2025Q4

REPORT INFORMATION
  Report Type: Report from Study
  Country: CA (occurrence: CA)
  Receive Date: 20250716
  Receipt Date: 20251228
  Transmission Date: 20260117
  Serious: Yes (Other)
  Sender: TAKEDA
  Company Number: CA-TAKEDA-2025TUS032454

PATIENT
  Age: 56 Year
  Sex: Male

DRUGS (11)
  1. VEDOLIZUMAB [Suspect]
     Active Substance: VEDOLIZUMAB
     Indication: Colitis ulcerative
     Dosage: 300 MILLIGRAM
  2. VEDOLIZUMAB [Suspect]
     Active Substance: VEDOLIZUMAB
     Dosage: 300 MILLIGRAM
  3. VEDOLIZUMAB [Suspect]
     Active Substance: VEDOLIZUMAB
     Dosage: 300 MILLIGRAM
  4. VEDOLIZUMAB [Suspect]
     Active Substance: VEDOLIZUMAB
     Indication: Colitis ulcerative
     Dosage: 108 MILLIGRAM, Q2WEEKS
     Dates: start: 20250327
  5. VEDOLIZUMAB [Suspect]
     Active Substance: VEDOLIZUMAB
     Dosage: 108 MILLIGRAM, Q2WEEKS
  6. BUDESONIDE [Concomitant]
     Active Substance: BUDESONIDE
     Dosage: UNK
  7. ENTOCORT [Concomitant]
     Active Substance: BUDESONIDE
     Dosage: UNK
  8. Cortiment [Concomitant]
     Dosage: UNK
  9. RANITIDINE HYDROCHLORIDE [Concomitant]
     Active Substance: RANITIDINE HYDROCHLORIDE
     Indication: Drug ineffective
     Dosage: UNK
  10. PANTOPRAZOLE SODIUM [Concomitant]
     Active Substance: PANTOPRAZOLE SODIUM
     Indication: Drug ineffective
     Dosage: UNK
  11. PENTASA [Concomitant]
     Active Substance: MESALAMINE
     Indication: Drug ineffective
     Dosage: UNK

REACTIONS (2)
  - Headache [Recovering/Resolving]
  - Blood pressure increased [Not Recovered/Not Resolved]
